FAERS Safety Report 10149615 (Version 1)
Quarter: 2014Q2

REPORT INFORMATION
  Report Type: Spontaneous
  Country: GB (occurrence: GB)
  Receive Date: 20140502
  Receipt Date: 20140502
  Transmission Date: 20141212
  Serious: Yes (Death)
  Sender: FDA-Public Use
  Company Number: GB-PFIZER INC-2014117331

PATIENT
  Age: 85 Year
  Sex: Female

DRUGS (1)
  1. VORICONAZOLE [Suspect]

REACTIONS (1)
  - Death [Fatal]
